FAERS Safety Report 16464440 (Version 1)
Quarter: 2019Q2

REPORT INFORMATION
  Report Type: Spontaneous
  Country: IT (occurrence: IT)
  Receive Date: 20190621
  Receipt Date: 20190621
  Transmission Date: 20190711
  Serious: Yes (Hospitalization, Other)
  Sender: FDA-Public Use
  Company Number: IT-MYLANLABS-2019M1057584

PATIENT
  Age: 7 Year
  Weight: 18 kg

DRUGS (1)
  1. BACLOFEN. [Suspect]
     Active Substance: BACLOFEN
     Indication: QUADRIPLEGIA
     Dosage: INTRATHECAL BACLOFEN PUMP WAS IMPLANTED TWO MONTHS BEFORE. BACLOFEN INFUSION RATE WAS GRADUALLY I...
     Route: 037

REACTIONS (2)
  - Neurotoxicity [Recovered/Resolved]
  - Lethargy [Recovered/Resolved]
